FAERS Safety Report 16743347 (Version 3)
Quarter: 2019Q3

REPORT INFORMATION
  Report Type: Spontaneous
  Country: US (occurrence: US)
  Receive Date: 20190827
  Receipt Date: 20190923
  Transmission Date: 20191005
  Serious: No
  Sender: FDA-Public Use
  Company Number: US-AMGEN-USASP2019135429

PATIENT
  Age: 55 Year
  Sex: Female
  Weight: 251 kg

DRUGS (1)
  1. NEULASTA [Suspect]
     Active Substance: PEGFILGRASTIM
     Indication: PRODUCT USED FOR UNKNOWN INDICATION
     Dosage: 6 MILLIGRAM
     Route: 065
     Dates: start: 20190413

REACTIONS (2)
  - Unintentional medical device removal [Unknown]
  - Device use error [Unknown]

NARRATIVE: CASE EVENT DATE: 20190820
